FAERS Safety Report 5699558-4 (Version None)
Quarter: 2008Q2

REPORT INFORMATION
  Report Type: 
  Country: None (occurrence: None)
  Receive Date: 20080410
  Receipt Date: 20080401
  Transmission Date: 20081010
  Serious: Yes (Death, Hospitalization)
  Sender: FDA-Public Use
  Company Number: FR-ABBOTT-07P-056-0420224-00

PATIENT
  Sex: Female
  Weight: 53 kg

DRUGS (13)
  1. HUMIRA [Suspect]
     Indication: RHEUMATOID ARTHRITIS
     Route: 058
     Dates: start: 20040526, end: 20061220
  2. COMMERCIAL HUMIRA [Concomitant]
     Indication: RHEUMATOID ARTHRITIS
     Route: 058
     Dates: start: 20031020
  3. ACEBUTOLOL HYDROCHLORIDE [Concomitant]
     Indication: CARDIAC DISORDER
     Dates: end: 20061224
  4. ALENDRONATE SODIUM [Concomitant]
     Indication: OSTEOPOROSIS
     Dates: end: 20061224
  5. RELEVENE [Concomitant]
     Indication: DRUG USE FOR UNKNOWN INDICATION
     Dates: end: 20061224
  6. AMIODARONE HYDROCHLORIDE [Concomitant]
     Indication: CARDIAC DISORDER
     Dates: end: 20061224
  7. RILMENIDINE [Concomitant]
     Indication: CARDIAC DISORDER
     Dates: end: 20061224
  8. METHOTREXATE [Concomitant]
     Indication: PALINDROMIC RHEUMATISM
     Dosage: 6 TABLETS
  9. METHOTREXATE [Concomitant]
     Dates: end: 20061224
  10. FOLIC ACID [Concomitant]
     Indication: PALINDROMIC RHEUMATISM
     Dates: end: 20061224
  11. ESOMEPRAZOLE MAGNESIUM [Concomitant]
     Indication: GASTRITIS PROPHYLAXIS
     Dates: end: 20061224
  12. COLCHIMAX [Concomitant]
     Indication: PALINDROMIC RHEUMATISM
     Dates: end: 20061224
  13. FLURBIPROFEN [Concomitant]
     Indication: PALINDROMIC RHEUMATISM
     Dates: end: 20061224

REACTIONS (2)
  - CARDIAC FAILURE CONGESTIVE [None]
  - LUNG DISORDER [None]
